FAERS Safety Report 5544361-9 (Version None)
Quarter: 2007Q4

REPORT INFORMATION
  Report Type: 
  Country: None (occurrence: None)
  Receive Date: 20071210
  Receipt Date: 20061129
  Transmission Date: 20080405
  Serious: No
  Sender: FDA-Public Use
  Company Number: US-AMGEN-KDL201793

PATIENT
  Sex: Female

DRUGS (2)
  1. ENBREL [Suspect]
     Indication: JUVENILE ARTHRITIS
     Route: 058
     Dates: start: 20040301
  2. METHOTREXATE [Concomitant]
     Route: 048

REACTIONS (9)
  - ANOREXIA [None]
  - CONDITION AGGRAVATED [None]
  - DIZZINESS [None]
  - JUVENILE ARTHRITIS [None]
  - NAUSEA [None]
  - PALLOR [None]
  - STAPHYLOCOCCAL INFECTION [None]
  - VOMITING [None]
  - WEIGHT DECREASED [None]
